FAERS Safety Report 6437688-X (Version None)
Quarter: 2009Q4

REPORT INFORMATION
  Report Type: 
  Country: None (occurrence: None)
  Receive Date: 20091112
  Receipt Date: 20091106
  Transmission Date: 20100525
  Serious: Yes (Death)
  Sender: FDA-Public Use
  Company Number: B0603618A

PATIENT
  Age: 88 Year
  Sex: Female

DRUGS (6)
  1. ARTIST [Suspect]
     Indication: VENTRICULAR EXTRASYSTOLES
     Dosage: 5MG PER DAY
     Route: 048
     Dates: start: 20090805, end: 20091013
  2. MOBIC [Suspect]
     Dosage: 10MG PER DAY
     Route: 048
     Dates: start: 20090816, end: 20091008
  3. MUCOSTA [Suspect]
     Route: 065
  4. APRINDINE HYDROCHLORIDE [Suspect]
     Indication: VENTRICULAR EXTRASYSTOLES
     Route: 065
  5. BONALON [Suspect]
     Route: 065
  6. MAGMITT [Concomitant]

REACTIONS (2)
  - AGRANULOCYTOSIS [None]
  - DEATH [None]
